FAERS Safety Report 9454623 (Version 3)
Quarter: 2013Q3

REPORT INFORMATION
  Report Type: Spontaneous
  Country: JP (occurrence: JP)
  Receive Date: 20130812
  Receipt Date: 20130912
  Transmission Date: 20140515
  Serious: Yes (Death)
  Sender: FDA-Public Use
  Company Number: JP-ABBOTT-13P-087-1131507-00

PATIENT
  Age: 45 Year
  Sex: Female
  Weight: 55.2 kg

DRUGS (4)
  1. HUMIRA [Suspect]
     Indication: PSORIASIS
     Route: 058
     Dates: start: 20130702, end: 20130702
  2. HUMIRA [Suspect]
     Route: 058
     Dates: start: 20130716, end: 20130802
  3. ISONIAZID [Concomitant]
     Indication: PULMONARY TUBERCULOSIS
     Route: 048
     Dates: start: 20130613, end: 20130804
  4. ISONIAZID [Concomitant]
     Indication: PROPHYLAXIS

REACTIONS (1)
  - Cervical vertebral fracture [Fatal]
